FAERS Safety Report 8235911-2 (Version None)
Quarter: 2012Q1

REPORT INFORMATION
  Report Type: 
  Country: None (occurrence: None)
  Receive Date: 20120326
  Receipt Date: 20110304
  Transmission Date: 20120608
  Serious: Yes (Hospitalization)
  Sender: FDA-Public Use
  Company Number: GR-BAYER-200916737GPV

PATIENT
  Age: 84 Year
  Sex: Male
  Weight: 75 kg

DRUGS (10)
  1. MOXIFLOXACIN [Suspect]
     Indication: BRONCHITIS
     Dosage: 400 MG, QD
     Route: 048
     Dates: start: 20090313, end: 20090318
  2. FLAGYL [Concomitant]
     Indication: BRONCHITIS CHRONIC
     Dosage: DAILY DOSE 1500 MG
     Route: 042
     Dates: start: 20090318, end: 20090320
  3. ADALAT [Concomitant]
     Indication: CORONARY ARTERY DISEASE
     Dosage: DAILY DOSE 20 MG
     Route: 048
     Dates: start: 20040101
  4. SYMBICORT [Concomitant]
     Indication: BRONCHITIS CHRONIC
     Dosage: DAILY DOSE 160 MG
     Route: 048
     Dates: start: 19990101
  5. MODURETIC 5-50 [Concomitant]
     Indication: CORONARY ARTERY DISEASE
     Dosage: AS USED DOSE: 5/50 MG
     Route: 048
     Dates: start: 20040101
  6. ATROVENT [Concomitant]
     Indication: BRONCHITIS CHRONIC
     Dosage: DAILY DOSE 40 ?G
     Route: 055
     Dates: start: 19990101
  7. FLAGYL [Concomitant]
     Dosage: DAILY DOSE 1000 MG
     Route: 042
     Dates: start: 20090321, end: 20090325
  8. PLAVIX [Concomitant]
     Indication: CORONARY ARTERY DISEASE
     Dosage: DAILY DOSE 75 MG
     Route: 048
     Dates: start: 20040101
  9. SPIRIVA [Concomitant]
     Indication: BRONCHITIS CHRONIC
     Dosage: DAILY DOSE 18 MG
     Route: 055
     Dates: start: 19990101
  10. CIPROFLOXACIN [Concomitant]
     Indication: BRONCHITIS CHRONIC
     Dosage: DAILY DOSE 400 MG
     Route: 048
     Dates: start: 20090318, end: 20090321

REACTIONS (1)
  - GASTROENTERITIS [None]
